FAERS Safety Report 10632744 (Version 2)
Quarter: 2014Q4

REPORT INFORMATION
  Report Type: Spontaneous
  Country: US (occurrence: US)
  Receive Date: 20141205
  Receipt Date: 20141205
  Transmission Date: 20150529
  Serious: No
  Sender: FDA-Public Use
  Company Number: US-BRISTOL-MYERS SQUIBB COMPANY-21554761

PATIENT
  Age: 59 Year
  Sex: Female

DRUGS (9)
  1. VITAMIN C [Concomitant]
     Active Substance: ASCORBIC ACID
  2. SPRYCEL [Suspect]
     Active Substance: DASATINIB
     Indication: CHRONIC MYELOID LEUKAEMIA
     Dosage: 2TABS/DAY?5AUG14:20MG
     Route: 048
     Dates: start: 20140508
  3. TYLENOL [Concomitant]
     Active Substance: ACETAMINOPHEN
  4. FAMCICLOVIR. [Concomitant]
     Active Substance: FAMCICLOVIR
  5. CALCIUM [Concomitant]
     Active Substance: CALCIUM
  6. TRIAMCINOLONE [Concomitant]
     Active Substance: TRIAMCINOLONE
  7. MULTIVITAMIN [Concomitant]
     Active Substance: VITAMINS
  8. ASA [Concomitant]
     Active Substance: ASPIRIN
  9. VITAMIN D3 [Concomitant]
     Active Substance: CHOLECALCIFEROL

REACTIONS (4)
  - Pain in extremity [Unknown]
  - Rash [Unknown]
  - Product quality issue [Unknown]
  - Abdominal pain [Unknown]

NARRATIVE: CASE EVENT DATE: 2014
